FAERS Safety Report 8107396-8 (Version None)
Quarter: 2012Q1

REPORT INFORMATION
  Report Type: 
  Country: None (occurrence: None)
  Receive Date: 20120202
  Receipt Date: 20120131
  Transmission Date: 20120608
  Serious: No
  Sender: FDA-Public Use
  Company Number: US-TEVA-317651USA

PATIENT
  Sex: Female
  Weight: 61.29 kg

DRUGS (3)
  1. LEVETIRACETAM [Concomitant]
     Indication: EPILEPSY
     Dosage: 3000 MILLIGRAM;
     Route: 048
  2. ZONISAMIDE [Concomitant]
     Indication: EPILEPSY
     Dosage: 300 MILLIGRAM;
     Route: 048
  3. PLAN B ONE-STEP [Suspect]
     Indication: POST COITAL CONTRACEPTION
     Dosage: 1.5 MILLIGRAM;
     Route: 048
     Dates: start: 20120106, end: 20120106

REACTIONS (2)
  - NIPPLE PAIN [None]
  - MENSTRUATION IRREGULAR [None]
